FAERS Safety Report 23089954 (Version 1)
Quarter: 2023Q4

REPORT INFORMATION
  Report Type: Spontaneous
  Country: US (occurrence: US)
  Receive Date: 20231020
  Receipt Date: 20231020
  Transmission Date: 20240109
  Serious: No
  Sender: FDA-Public Use
  Company Number: US-PFIZER INC-2020479352

PATIENT
  Age: 51 Year
  Sex: Female

DRUGS (2)
  1. XELJANZ XR [Suspect]
     Active Substance: TOFACITINIB CITRATE
     Indication: Rheumatoid arthritis
     Dosage: 11 MG, 1X/DAY
     Route: 048
  2. RINVOQ [Concomitant]
     Active Substance: UPADACITINIB
     Dosage: UNK (RINVOQ ER)

REACTIONS (2)
  - Furuncle [Not Recovered/Not Resolved]
  - Condition aggravated [Not Recovered/Not Resolved]
